FAERS Safety Report 8546556-9 (Version None)
Quarter: 2012Q3

REPORT INFORMATION
  Report Type: 
  Country: None (occurrence: None)
  Receive Date: 20120727
  Receipt Date: 20120130
  Transmission Date: 20120928
  Serious: No
  Sender: FDA-Public Use
  Company Number: US-ASTRAZENECA-2011SE78155

PATIENT
  Age: 56 Year
  Sex: Female
  Weight: 74.8 kg

DRUGS (17)
  1. SEROQUEL [Suspect]
     Indication: ANXIETY
     Route: 048
     Dates: start: 20100101, end: 20111001
  2. SEROQUEL [Suspect]
     Indication: DEPRESSION
     Route: 048
     Dates: start: 20100101, end: 20111001
  3. SEROQUEL [Suspect]
     Indication: MAJOR DEPRESSION
     Route: 048
     Dates: start: 20100101, end: 20111001
  4. CLONAZEPAM [Concomitant]
     Indication: ANXIETY
  5. SEROQUEL [Suspect]
     Route: 048
     Dates: start: 20111001
  6. SEROQUEL [Suspect]
     Route: 048
     Dates: start: 20111001
  7. SEROQUEL [Suspect]
     Indication: PANIC ATTACK
     Route: 048
     Dates: start: 20100101, end: 20111001
  8. SEROQUEL [Suspect]
     Route: 048
     Dates: start: 20111001
  9. EFFOXOR XR [Concomitant]
     Indication: DEPRESSION
  10. TOPAMAX [Concomitant]
     Indication: MIGRAINE
  11. SEROQUEL [Suspect]
     Route: 048
     Dates: start: 20111001
  12. SEROQUEL [Suspect]
     Route: 048
     Dates: start: 20111001
  13. PREVACHOL [Concomitant]
     Indication: BLOOD CHOLESTEROL ABNORMAL
  14. SEROQUEL [Suspect]
     Indication: PSYCHOTIC DISORDER
     Route: 048
     Dates: start: 20100101, end: 20111001
  15. SEROQUEL [Suspect]
     Route: 048
     Dates: start: 20111001
  16. SYNTHROID [Concomitant]
     Indication: THYROID DISORDER
  17. SEROQUEL [Suspect]
     Indication: INSOMNIA
     Route: 048
     Dates: start: 20100101, end: 20111001

REACTIONS (2)
  - HYPERSOMNIA [None]
  - OFF LABEL USE [None]
